FAERS Safety Report 4962234-7 (Version None)
Quarter: 2006Q2

REPORT INFORMATION
  Report Type: 
  Country: None (occurrence: None)
  Receive Date: 20060404
  Receipt Date: 20060330
  Transmission Date: 20061013
  Serious: Yes (Death)
  Sender: FDA-Public Use
  Company Number: PHEH2006US04210

PATIENT
  Sex: Female

DRUGS (1)
  1. DIOVAN [Suspect]
     Dosage: UNK,UNK

REACTIONS (5)
  - ARTHRALGIA [None]
  - DEATH [None]
  - DIFFICULTY IN WALKING [None]
  - FALL [None]
  - MYALGIA [None]
